FAERS Safety Report 24058232 (Version 2)
Quarter: 2024Q3

REPORT INFORMATION
  Report Type: Spontaneous
  Country: DE (occurrence: DE)
  Receive Date: 20240708
  Receipt Date: 20240723
  Transmission Date: 20241016
  Serious: Yes (Hospitalization, Disabling, Other)
  Sender: AUROBINDO
  Company Number: DE-MLMSERVICE-20240624-PI104555-00290-2

PATIENT
  Age: 60 Year
  Sex: Female

DRUGS (15)
  1. LIDOCAINE [Suspect]
     Active Substance: LIDOCAINE
     Indication: Catheter management
     Dosage: 3 MILLILITER, 1 TOTAL
     Route: 008
  2. ROPIVACAINE [Suspect]
     Active Substance: ROPIVACAINE
     Indication: Epidural anaesthesia
     Dosage: 10 MILLILITER, 1 TOTAL (LOADING DOSE)
     Route: 008
  3. ROPIVACAINE [Suspect]
     Active Substance: ROPIVACAINE
     Indication: Epidural anaesthesia
     Dosage: 8 MILLILITER, EVERY HOUR (AT FLOW RATES OF 8 AND 10 ML/HOUR)
     Route: 008
  4. ROPIVACAINE [Suspect]
     Active Substance: ROPIVACAINE
     Dosage: 10 MILLILITER, EVERY HOUR (AT FLOW RATES OF 8 AND 10 ML/HOUR)
     Route: 008
  5. ATORVASTATIN [Concomitant]
     Active Substance: ATORVASTATIN
     Indication: Product used for unknown indication
     Dosage: 40 MILLIGRAM, ONCE A DAY
     Route: 065
  6. CANDESARTAN [Concomitant]
     Active Substance: CANDESARTAN
     Indication: Product used for unknown indication
     Dosage: 8 MILLIGRAM, ONCE A DAY
     Route: 065
  7. CHOLECALCIFEROL [Concomitant]
     Active Substance: CHOLECALCIFEROL
     Indication: Product used for unknown indication
     Dosage: 20000 INTERNATIONAL UNIT, EVERY WEEK
     Route: 065
  8. INSULIN NOS [Concomitant]
     Active Substance: INSULIN NOS
     Indication: Type 1 diabetes mellitus
     Dosage: UNK
     Route: 058
  9. LEVOTHYROXINE [Concomitant]
     Active Substance: LEVOTHYROXINE\LEVOTHYROXINE SODIUM
     Indication: Product used for unknown indication
     Dosage: 75 MICROGRAM, ONCE A DAY
     Route: 065
  10. PROPOFOL [Concomitant]
     Active Substance: PROPOFOL
     Indication: General anaesthesia
     Dosage: UNK
     Route: 065
  11. NOREPINEPHRINE [Concomitant]
     Active Substance: NOREPINEPHRINE\NOREPINEPHRINE BITARTRATE
     Indication: Product used for unknown indication
     Dosage: 0.06 MICROGRAM/KILOGRAM, ONE MIN (UP TO 0.06 UG/KG/MIN)
     Route: 065
  12. PANTOPRAZOLE [Concomitant]
     Active Substance: PANTOPRAZOLE
     Indication: Product used for unknown indication
     Dosage: 20 MILLIGRAM, ONCE A DAY
     Route: 065
  13. ROCURONIUM [Concomitant]
     Active Substance: ROCURONIUM BROMIDE
     Indication: Induction of anaesthesia
     Dosage: UNK
     Route: 065
  14. SPIRONOLACTONE [Concomitant]
     Active Substance: SPIRONOLACTONE
     Indication: Product used for unknown indication
     Dosage: 75 MILLIGRAM, EVERY WEEK (25 MG THREE TIMES A WEEK)
     Route: 065
  15. SUFENTANIL [Concomitant]
     Active Substance: SUFENTANIL
     Indication: Induction of anaesthesia
     Dosage: UNK
     Route: 065

REACTIONS (5)
  - Paraparesis [Recovering/Resolving]
  - Paraplegia [Recovering/Resolving]
  - Spinal cord injury thoracic [Recovering/Resolving]
  - Spinal cord compression [Recovering/Resolving]
  - Sensorimotor disorder [Recovering/Resolving]
